FAERS Safety Report 17915570 (Version 2)
Quarter: 2020Q2

REPORT INFORMATION
  Report Type: Report from Study
  Country: US (occurrence: US)
  Receive Date: 20200619
  Receipt Date: 20200626
  Transmission Date: 20200714
  Serious: Yes (Hospitalization)
  Sender: FDA-Public Use
  Company Number: US-DECIPHERA PHARMACEUTICALS-2020US000150

PATIENT
  Age: 77 Year
  Sex: Male

DRUGS (26)
  1. DCC-2618 [Suspect]
     Active Substance: RIPRETINIB
     Dosage: 100 MG, BID
     Route: 048
     Dates: start: 20191230, end: 20191231
  2. DCC-2618 [Suspect]
     Active Substance: RIPRETINIB
     Dosage: 100 MG, QD
     Route: 048
     Dates: start: 20200115, end: 20200115
  3. DCC-2618 [Suspect]
     Active Substance: RIPRETINIB
     Dosage: 100 MG, BID
     Route: 048
     Dates: start: 20200102, end: 20200114
  4. DCC-2618 [Suspect]
     Active Substance: RIPRETINIB
     Dosage: 100 MG, BID
     Route: 048
     Dates: start: 20200213, end: 20200225
  5. DCC-2618 [Suspect]
     Active Substance: RIPRETINIB
     Dosage: 100 MG, QD
     Route: 048
     Dates: start: 20200101, end: 20200101
  6. NITROGLYCERIN. [Concomitant]
     Active Substance: NITROGLYCERIN
     Indication: CHEST PAIN
     Dosage: 0.3 DF, UNK
     Route: 048
     Dates: start: 20191101
  7. ASPIRIN. [Concomitant]
     Active Substance: ASPIRIN
     Indication: PROPHYLAXIS
     Dosage: 81 MG, UNK
     Route: 048
     Dates: start: 20191107
  8. DCC-2618 [Suspect]
     Active Substance: RIPRETINIB
     Dosage: 100 MG, BID
     Route: 048
     Dates: start: 20191106, end: 20191120
  9. DCC-2618 [Suspect]
     Active Substance: RIPRETINIB
     Dosage: 100 MG, QD
     Route: 048
     Dates: start: 20191220, end: 20191228
  10. DCC-2618 [Suspect]
     Active Substance: RIPRETINIB
     Dosage: 100 MG, QD
     Route: 048
     Dates: start: 20200226, end: 20200226
  11. DCC-2618 [Suspect]
     Active Substance: RIPRETINIB
     Dosage: 100 MG, QD
     Dates: start: 20200212, end: 20200212
  12. CLOPIDOGREL [Concomitant]
     Active Substance: CLOPIDOGREL BISULFATE
     Indication: CORONARY ARTERY DISEASE
     Dosage: 75 MG, UNK
     Route: 048
     Dates: start: 2016
  13. EZETIMIBE. [Concomitant]
     Active Substance: EZETIMIBE
     Indication: HYPERTENSION
     Dosage: 10 MG, UNK
     Route: 048
     Dates: start: 20191023
  14. MIRALAX [Concomitant]
     Active Substance: POLYETHYLENE GLYCOL 3350
     Indication: CONSTIPATION
     Dosage: 17 G, UNK
     Route: 048
     Dates: start: 20190904
  15. PROCHLORPERAZINE. [Concomitant]
     Active Substance: PROCHLORPERAZINE
     Indication: NAUSEA
     Dosage: 30 MG, UNK
     Route: 048
     Dates: start: 20191023
  16. DCC-2618 [Suspect]
     Active Substance: RIPRETINIB
     Dosage: 100 MG, QD
     Route: 048
     Dates: start: 20191121, end: 20191121
  17. DCC-2618 [Suspect]
     Active Substance: RIPRETINIB
     Dosage: 100 MG, QD
     Route: 048
     Dates: start: 20191218, end: 20191219
  18. DCC-2618 [Suspect]
     Active Substance: RIPRETINIB
     Dosage: 200 MG, QD
     Route: 048
     Dates: start: 20191229, end: 20191229
  19. DCC-2618 [Suspect]
     Active Substance: RIPRETINIB
     Dosage: 100 MG, BID
     Route: 048
     Dates: start: 20200208, end: 20200211
  20. METOPROLOL TARTRATE. [Concomitant]
     Active Substance: METOPROLOL TARTRATE
     Indication: CORONARY ARTERY DISEASE
     Dosage: 75 MG, UNK
     Route: 048
  21. DIPHENHYDRAMINE. [Concomitant]
     Active Substance: DIPHENHYDRAMINE
     Indication: PRURITUS
     Dosage: 100 MG, QD
     Route: 048
     Dates: start: 20191017
  22. DCC-2618 [Suspect]
     Active Substance: RIPRETINIB
     Indication: SYSTEMIC MASTOCYTOSIS
     Dosage: 150 MG, BID
     Route: 048
     Dates: start: 20191023, end: 20191028
  23. DCC-2618 [Suspect]
     Active Substance: RIPRETINIB
     Dosage: 100 MG, BID
     Route: 048
     Dates: start: 20200116, end: 20200206
  24. DCC-2618 [Suspect]
     Active Substance: RIPRETINIB
     Dosage: 100 MG, BID
     Route: 048
     Dates: start: 20200227, end: 20200505
  25. DCC-2618 [Suspect]
     Active Substance: RIPRETINIB
     Dosage: 100 MG, BID
     Route: 048
     Dates: start: 20191122, end: 20191216
  26. DCC-2618 [Suspect]
     Active Substance: RIPRETINIB
     Dosage: 150 MG, BID
     Route: 048
     Dates: start: 20200506

REACTIONS (1)
  - Angina pectoris [Recovered/Resolved with Sequelae]

NARRATIVE: CASE EVENT DATE: 20200518
